FAERS Safety Report 10215265 (Version 1)
Quarter: 2014Q2

REPORT INFORMATION
  Report Type: Report from Study
  Country: IE (occurrence: IE)
  Receive Date: 20140603
  Receipt Date: 20140603
  Transmission Date: 20141212
  Serious: Yes (Disabling, Other)
  Sender: FDA-Public Use
  Company Number: PHFR2014IE003893

PATIENT
  Age: 23 Year
  Sex: Female

DRUGS (1)
  1. TOBI [Suspect]
     Dosage: UNK
     Route: 055

REACTIONS (2)
  - Depression [Recovered/Resolved]
  - Depressed mood [Recovered/Resolved]
